FAERS Safety Report 15781185 (Version 2)
Quarter: 2019Q1

REPORT INFORMATION
  Report Type: Report from Study
  Country: None (occurrence: US)
  Receive Date: 20190102
  Receipt Date: 20190203
  Transmission Date: 20190417
  Serious: Yes (Other)
  Sender: FDA-Public Use
  Company Number: US-ABBVIE-18K-163-2606287-00

PATIENT
  Age: 68 Year
  Sex: Female

DRUGS (3)
  1. VIT B 12 [Suspect]
     Active Substance: CYANOCOBALAMIN
     Indication: PRODUCT USED FOR UNKNOWN INDICATION
     Route: 065
  2. PROLIA [Suspect]
     Active Substance: DENOSUMAB
     Indication: PRODUCT USED FOR UNKNOWN INDICATION
     Route: 065
  3. HUMIRA [Suspect]
     Active Substance: ADALIMUMAB
     Indication: CROHN^S DISEASE
     Route: 058

REACTIONS (8)
  - Dizziness [Recovered/Resolved]
  - Respiratory tract congestion [Recovered/Resolved]
  - Nasopharyngitis [Recovered/Resolved]
  - Drug hypersensitivity [Unknown]
  - Haemorrhoids [Unknown]
  - Large intestinal stenosis [Unknown]
  - Colitis [Unknown]
  - Headache [Recovered/Resolved]

NARRATIVE: CASE EVENT DATE: 20181023
